FAERS Safety Report 16668486 (Version 2)
Quarter: 2019Q3

REPORT INFORMATION
  Report Type: Spontaneous
  Country: US (occurrence: US)
  Receive Date: 20190805
  Receipt Date: 20190925
  Transmission Date: 20191004
  Serious: No
  Sender: FDA-Public Use
  Company Number: US-PFIZER INC-2019332455

PATIENT
  Age: 41 Year
  Sex: Female
  Weight: 63.5 kg

DRUGS (3)
  1. SYNTHROID [Concomitant]
     Active Substance: LEVOTHYROXINE SODIUM
     Indication: HYPOTHYROIDISM
     Dosage: 50 UG, DAILY
     Dates: start: 2012
  2. EFFEXOR XR [Suspect]
     Active Substance: VENLAFAXINE HYDROCHLORIDE
     Dosage: 75 MG, DAILY
     Route: 048
     Dates: start: 20190719
  3. EFFEXOR XR [Suspect]
     Active Substance: VENLAFAXINE HYDROCHLORIDE
     Indication: GENERALISED ANXIETY DISORDER
     Dosage: 37.5 MG, DAILY
     Route: 048
     Dates: start: 2006

REACTIONS (4)
  - Headache [Recovered/Resolved]
  - Somnolence [Recovered/Resolved]
  - Thinking abnormal [Recovered/Resolved]
  - Drug ineffective [Recovered/Resolved]

NARRATIVE: CASE EVENT DATE: 201905
